FAERS Safety Report 8858087 (Version 1)
Quarter: 2012Q4

REPORT INFORMATION
  Report Type: 
  Country: US (occurrence: US)
  Receive Date: 20121024
  Receipt Date: 20121024
  Transmission Date: 20130627
  Serious: No
  Sender: FDA-Public Use
  Company Number: US-AMGEN-USASP2011064164

PATIENT
  Age: 34 Year
  Sex: Female
  Weight: 99.32 kg

DRUGS (12)
  1. ENBREL [Suspect]
     Indication: PRODUCT USED FOR UNKNOWN INDICATION
     Dosage: 50 mg, qwk
  2. PLAQUENIL                          /00072602/ [Concomitant]
     Dosage: 200 mg, UNK
     Route: 048
  3. LEFLUNOMIDE [Concomitant]
     Dosage: 10 mg, UNK
     Route: 048
  4. MELOXICAM [Concomitant]
     Dosage: 7.5 mg, UNK
     Route: 048
  5. FOLIC ACID [Concomitant]
     Dosage: 1 mg, UNK
  6. VITAMIN D /00107901/ [Concomitant]
     Dosage: 400 UNK, UNK
     Route: 048
  7. WELLBUTRIN [Concomitant]
     Dosage: 100 mg, UNK
     Route: 048
  8. ESTRADIOL [Concomitant]
     Dosage: 0.025 mg, UNK
  9. XANAX [Concomitant]
     Dosage: 0.5 mg, UNK
     Route: 048
  10. FISH OIL [Concomitant]
     Dosage: UNK
  11. ZINC [Concomitant]
     Dosage: 30 mg, UNK
  12. VITAMIN C                          /00008001/ [Concomitant]
     Dosage: 100 mg, UNK
     Route: 048

REACTIONS (1)
  - Headache [Unknown]
